FAERS Safety Report 6502693-1 (Version None)
Quarter: 2009Q4

REPORT INFORMATION
  Report Type: 
  Country: None (occurrence: None)
  Receive Date: 20091217
  Receipt Date: 20091208
  Transmission Date: 20100525
  Serious: Yes (Hospitalization, Other)
  Sender: FDA-Public Use
  Company Number: JP-JNJFOC-20091204229

PATIENT
  Age: 5 Year
  Sex: Male
  Weight: 19 kg

DRUGS (1)
  1. HALOPERIDOL [Suspect]
     Indication: NASOPHARYNGITIS
     Route: 065

REACTIONS (11)
  - ACCIDENTAL OVERDOSE [None]
  - AGITATION [None]
  - APHONIA [None]
  - DRUG TOXICITY [None]
  - DYSPHAGIA [None]
  - DYSTONIA [None]
  - EXTRAPYRAMIDAL DISORDER [None]
  - GAIT DISTURBANCE [None]
  - HEART RATE INCREASED [None]
  - RESTLESSNESS [None]
  - TONGUE PARALYSIS [None]
